FAERS Safety Report 18221568 (Version 1)
Quarter: 2020Q3

REPORT INFORMATION
  Report Type: Spontaneous
  Country: US (occurrence: US)
  Receive Date: 20200901
  Receipt Date: 20200901
  Transmission Date: 20201103
  Serious: Yes (Death)
  Sender: FDA-Public Use
  Company Number: None

PATIENT
  Age: 67 Year
  Sex: Female

DRUGS (2)
  1. TEMOZOLOMIDE. [Suspect]
     Active Substance: TEMOZOLOMIDE
  2. TEMOZOLOMIDE 20 MG AND 100 MG [Concomitant]
     Dates: start: 20191212, end: 20200801

REACTIONS (1)
  - Neoplasm malignant [None]
